FAERS Safety Report 9303067 (Version 1)
Quarter: 2013Q2

REPORT INFORMATION
  Report Type: Spontaneous
  Country: TR (occurrence: None)
  Receive Date: 20130516
  Receipt Date: 20130516
  Transmission Date: 20140414
  Serious: Yes (Other)
  Sender: FDA-Public Use
  Company Number: NPIL/SEV/H/2013/55

PATIENT
  Age: 6 Month
  Sex: Male
  Weight: 7.4 kg

DRUGS (1)
  1. SEVOFLURANE [Suspect]
     Indication: ANAESTHESIA
     Dosage: 2.5-4.0%, ONCE, INHALE

REACTIONS (2)
  - Crying [None]
  - Delayed recovery from anaesthesia [None]
